FAERS Safety Report 5822117-7 (Version None)
Quarter: 2008Q3

REPORT INFORMATION
  Report Type: 
  Country: None (occurrence: None)
  Receive Date: 20080725
  Receipt Date: 20080717
  Transmission Date: 20090109
  Serious: Yes (Other)
  Sender: FDA-Public Use
  Company Number: US-JNJFOC-20080704729

PATIENT
  Sex: Female
  Weight: 63.96 kg

DRUGS (2)
  1. TOPAMAX [Suspect]
     Indication: MIGRAINE PROPHYLAXIS
     Dosage: 25MG IN THE MORNING AND 50MG IN THE EVENING
  2. CELEXA [Concomitant]
     Indication: DEPRESSION

REACTIONS (2)
  - BREAST DISCHARGE [None]
  - NIPPLE EXUDATE BLOODY [None]
